FAERS Safety Report 6397986-5 (Version None)
Quarter: 2009Q4

REPORT INFORMATION
  Report Type: 
  Country: None (occurrence: None)
  Receive Date: 20091013
  Receipt Date: 20091005
  Transmission Date: 20100525
  Serious: Yes (Other)
  Sender: FDA-Public Use
  Company Number: NL-JNJFOC-20090707228

PATIENT
  Sex: Male
  Weight: 82 kg

DRUGS (4)
  1. RISPERDAL CONSTA [Suspect]
     Indication: SCHIZOPHRENIA, PARANOID TYPE
     Route: 030
  2. RISPERIDONE [Suspect]
     Indication: DRUG USE FOR UNKNOWN INDICATION
     Route: 048
  3. CLOMIPRAMINE HCL SANDOZ RETARD TABLET [Suspect]
     Indication: MAJOR DEPRESSION
     Route: 065
  4. DEPAKENE [Concomitant]
     Indication: CONVULSION
     Route: 065

REACTIONS (2)
  - HYPERCALCAEMIA [None]
  - HYPERTHYROIDISM [None]
